FAERS Safety Report 16608134 (Version 1)
Quarter: 2019Q3

REPORT INFORMATION
  Report Type: Spontaneous
  Country: US (occurrence: US)
  Receive Date: 20190719
  Receipt Date: 20190719
  Transmission Date: 20191004
  Serious: Yes (Death)
  Sender: FDA-Public Use
  Company Number: None

PATIENT
  Age: 53 Year
  Sex: Male

DRUGS (7)
  1. SPRYCEL [Suspect]
     Active Substance: DASATINIB
     Indication: ACUTE LYMPHOCYTIC LEUKAEMIA
     Route: 048
     Dates: start: 20171018, end: 20190718
  2. KEYTRUDA [Concomitant]
     Active Substance: PEMBROLIZUMAB
  3. ACYCLOVIR. [Concomitant]
     Active Substance: ACYCLOVIR
  4. FENTANTYL [Concomitant]
  5. PROTONIX [Concomitant]
     Active Substance: PANTOPRAZOLE SODIUM
  6. NORITATE [Concomitant]
     Active Substance: METRONIDAZOLE
  7. OPDIVO [Concomitant]
     Active Substance: NIVOLUMAB

REACTIONS (1)
  - Death [None]

NARRATIVE: CASE EVENT DATE: 20190718
